FAERS Safety Report 7737256-3 (Version None)
Quarter: 2011Q3

REPORT INFORMATION
  Report Type: 
  Country: None (occurrence: None)
  Receive Date: 20110908
  Receipt Date: 20110829
  Transmission Date: 20111222
  Serious: Yes (Hospitalization, Other)
  Sender: FDA-Public Use
  Company Number: US-UCBSA-038698

PATIENT
  Sex: Female
  Weight: 61.34 kg

DRUGS (6)
  1. LOPERAMIDE HCL [Concomitant]
     Dosage: AS NEEDED
  2. PREDNISONE [Suspect]
     Route: 048
     Dates: start: 20110330, end: 20110801
  3. CALCIUM CARBONATE [Concomitant]
     Dosage: AS NEEDED
  4. TYLENOL-500 [Concomitant]
     Dosage: AS NEEDED
  5. CIMZIA [Suspect]
     Indication: CROHN'S DISEASE
     Route: 058
     Dates: start: 20110504, end: 20110803
  6. RANITIDINE [Suspect]
     Route: 048

REACTIONS (11)
  - HERPES SIMPLEX [None]
  - ESCHERICHIA BACTERAEMIA [None]
  - DISSEMINATED INTRAVASCULAR COAGULATION [None]
  - HYPOALBUMINAEMIA [None]
  - HYPOKALAEMIA [None]
  - RENAL FAILURE ACUTE [None]
  - GENERALISED OEDEMA [None]
  - ABSCESS INTESTINAL [None]
  - HYPOCALCAEMIA [None]
  - LIVER ABSCESS [None]
  - SEPTIC SHOCK [None]
